FAERS Safety Report 17306086 (Version 2)
Quarter: 2020Q1

REPORT INFORMATION
  Report Type: Spontaneous
  Country: US (occurrence: US)
  Receive Date: 20200123
  Receipt Date: 20200211
  Transmission Date: 20200409
  Serious: No
  Sender: FDA-Public Use
  Company Number: US-BAXTER-2020BAX001303

PATIENT

DRUGS (2)
  1. BUPIVACAINE. [Suspect]
     Active Substance: BUPIVACAINE
     Indication: PRODUCT USED FOR UNKNOWN INDICATION
     Dosage: 30 ML VIAL?INFUSED OVER 30 MINUTES
     Route: 042
     Dates: start: 20191111
  2. 0.9% SODIUM CHLORIDE INJECTION, USP IN MINI-BAG PLUS CONTAINER [Suspect]
     Active Substance: SODIUM CHLORIDE
     Indication: PRODUCT USED FOR UNKNOWN INDICATION
     Dosage: 100 ML?INFUSED OVER 30 MINUTES
     Route: 042
     Dates: start: 20191111

REACTIONS (3)
  - Wrong product administered [Unknown]
  - Hypotension [Unknown]
  - Product barcode issue [Unknown]

NARRATIVE: CASE EVENT DATE: 20191111
